FAERS Safety Report 8283465-7 (Version None)
Quarter: 2012Q2

REPORT INFORMATION
  Report Type: 
  Country: None (occurrence: None)
  Receive Date: 20120413
  Receipt Date: 20111031
  Transmission Date: 20120825
  Serious: Yes (Hospitalization)
  Sender: FDA-Public Use
  Company Number: PHHO2011RU021903

PATIENT
  Sex: Male
  Weight: 83.1 kg

DRUGS (9)
  1. ENALAPRIL MALEATE [Suspect]
     Indication: CARDIAC FAILURE
     Dosage: CODE NOT BROKEN
     Route: 048
     Dates: start: 20101005
  2. DIGOXIN [Suspect]
     Dosage: 0.025 MG, QD
     Route: 048
     Dates: start: 20100727, end: 20110926
  3. BLINDED ALISKIREN [Suspect]
     Indication: CARDIAC FAILURE
     Dosage: CODE NOT BROKEN
     Route: 048
     Dates: start: 20101005
  4. SIMVASTATIN [Concomitant]
     Indication: ANGINA PECTORIS
     Dosage: 10 MG, QD
     Route: 048
     Dates: start: 20101019
  5. BLINDED NO TREATMENT RECEIVED [Suspect]
     Indication: CARDIAC FAILURE
     Dosage: CODE NOT BROKEN
     Route: 048
     Dates: start: 20101005
  6. FUROSEMIDE [Concomitant]
     Indication: CARDIAC FAILURE CHRONIC
     Dosage: 40 MG, QD
     Route: 048
     Dates: start: 20100726
  7. ISOSORBIDE DINITRATE [Concomitant]
     Indication: ANGINA PECTORIS
     Dosage: 20 MG, BID
     Route: 048
     Dates: start: 20100722, end: 20110926
  8. BISOPROLOL FUMARATE [Suspect]
     Indication: CARDIAC FAILURE CHRONIC
     Dosage: 10 MG, QD
     Route: 048
     Dates: start: 20110428, end: 20110926
  9. THROMBO AS [Concomitant]
     Indication: ANGINA PECTORIS
     Dosage: 100 MG, QD
     Route: 048
     Dates: start: 20100727

REACTIONS (3)
  - LEFT VENTRICULAR HYPERTROPHY [None]
  - ATRIAL FIBRILLATION [None]
  - BRADYCARDIA [None]
